FAERS Safety Report 5857248-9 (Version None)
Quarter: 2008Q3

REPORT INFORMATION
  Report Type: 
  Country: None (occurrence: None)
  Receive Date: 20080821
  Receipt Date: 20080806
  Transmission Date: 20090109
  Serious: Yes (Hospitalization)
  Sender: FDA-Public Use
  Company Number: 02100-JPN-07-0198

PATIENT
  Age: 53 Year
  Sex: Male
  Weight: 56 kg

DRUGS (7)
  1. PLETAL [Suspect]
     Indication: CEREBRAL INFARCTION
     Dosage: 100 MG, BID ORAL;
     Route: 048
     Dates: start: 20060825, end: 20070328
  2. PLETAL [Suspect]
     Indication: CEREBRAL INFARCTION
     Dosage: 100 MG, BID ORAL;
     Route: 048
     Dates: start: 20070518
  3. PLETAL [Suspect]
     Indication: CEREBRAL INFARCTION
     Dosage: 81 MG, QD, ORAL
     Route: 048
     Dates: start: 20060825, end: 20070328
  4. PLETAL [Suspect]
     Indication: CEREBRAL INFARCTION
     Dosage: 81 MG, QD, ORAL
     Route: 048
     Dates: start: 20070518
  5. OLMETEC (OLMESARTAN MEDOXOMIL) TABLET [Concomitant]
  6. AMLODIN (AMLODIPINE BESILATE) TABLET [Concomitant]
  7. GAISAL (SODIUM AZULENE SULFONATE L-GLUTAMINE) GRANULE [Concomitant]

REACTIONS (4)
  - GASTRIC ULCER [None]
  - GASTRITIS ATROPHIC [None]
  - HIATUS HERNIA [None]
  - REFLUX OESOPHAGITIS [None]
